FAERS Safety Report 6916873-4 (Version None)
Quarter: 2010Q3

REPORT INFORMATION
  Report Type: 
  Country: None (occurrence: None)
  Receive Date: 20100804
  Receipt Date: 20100723
  Transmission Date: 20110219
  Serious: Yes (Hospitalization)
  Sender: FDA-Public Use
  Company Number: 1000015457

PATIENT
  Age: 72 Year
  Sex: Male

DRUGS (10)
  1. CITALOPRAM HYDROBROMIDE [Suspect]
     Dosage: SEE IMAGE
     Route: 048
     Dates: start: 20100301, end: 20100323
  2. CITALOPRAM HYDROBROMIDE [Suspect]
     Dosage: SEE IMAGE
     Route: 048
     Dates: start: 20100324, end: 20100331
  3. CITALOPRAM HYDROBROMIDE [Suspect]
     Dosage: SEE IMAGE
     Route: 048
     Dates: start: 20100401, end: 20100414
  4. CITALOPRAM HYDROBROMIDE [Suspect]
     Dosage: SEE IMAGE
     Route: 048
     Dates: start: 20100415
  5. RISPERDAL [Suspect]
     Dosage: 0.5 MG (0.5 MG, 1 IN 1 D), ORAL; 1 MG (1 MG, 1 IN 1 D), ORAL; 1.5 MG (1.5 MG, 1 IN 1 D), ORAL
     Route: 048
     Dates: start: 20100322, end: 20100322
  6. RISPERDAL [Suspect]
     Dosage: 0.5 MG (0.5 MG, 1 IN 1 D), ORAL; 1 MG (1 MG, 1 IN 1 D), ORAL; 1.5 MG (1.5 MG, 1 IN 1 D), ORAL
     Route: 048
     Dates: start: 20100323, end: 20100408
  7. RISPERDAL [Suspect]
     Dosage: 0.5 MG (0.5 MG, 1 IN 1 D), ORAL; 1 MG (1 MG, 1 IN 1 D), ORAL; 1.5 MG (1.5 MG, 1 IN 1 D), ORAL
     Route: 048
     Dates: start: 20100409, end: 20100412
  8. RISPERDAL [Suspect]
     Dosage: 2 MG (2 MG, 1 IN 1 D), ORAL
     Route: 048
     Dates: start: 20100413, end: 20100415
  9. RISPERDAL [Suspect]
     Dosage: 1 MG (1 MG, 1 IN 1 D), ORAL
     Route: 048
     Dates: start: 20100416
  10. FALITHROM [Concomitant]

REACTIONS (6)
  - DROOLING [None]
  - DRUG INTERACTION [None]
  - DYSPHAGIA [None]
  - DYSPHONIA [None]
  - JAW DISORDER [None]
  - SENSATION OF FOREIGN BODY [None]
